FAERS Safety Report 15594449 (Version 4)
Quarter: 2019Q1

REPORT INFORMATION
  Report Type: Report from Study
  Country: US (occurrence: US)
  Receive Date: 20181106
  Receipt Date: 20190306
  Transmission Date: 20190417
  Serious: Yes (Hospitalization)
  Sender: FDA-Public Use
  Company Number: US-ACTELION-A-NJ2018-181265

PATIENT
  Age: 82 Year
  Sex: Female
  Weight: 50.34 kg

DRUGS (5)
  1. VELETRI [Suspect]
     Active Substance: EPOPROSTENOL
     Dosage: 8 NG/KG, PER MIN
     Route: 042
     Dates: start: 20181026
  2. ORENITRAM [Suspect]
     Active Substance: TREPROSTINIL
     Indication: PULMONARY ARTERIAL HYPERTENSION
     Dosage: 2 MG, TID
     Route: 048
     Dates: start: 20160308, end: 20181027
  3. ADCIRCA [Concomitant]
     Active Substance: TADALAFIL
  4. VELETRI [Suspect]
     Active Substance: EPOPROSTENOL
     Indication: PULMONARY ARTERIAL HYPERTENSION
     Dosage: 15 NG/KG, PER MIN
     Route: 042
  5. OPSUMIT [Suspect]
     Active Substance: MACITENTAN
     Indication: PULMONARY ARTERIAL HYPERTENSION
     Dosage: 10 MG, QD
     Route: 048
     Dates: start: 20150602

REACTIONS (11)
  - Fluid overload [Unknown]
  - Weight decreased [Unknown]
  - Chills [Unknown]
  - Pyrexia [Unknown]
  - Diarrhoea [Unknown]
  - Dyspnoea [Unknown]
  - Headache [Unknown]
  - Exercise tolerance decreased [Unknown]
  - Vomiting [Unknown]
  - Therapy change [Recovered/Resolved]
  - Catheter site pruritus [Unknown]

NARRATIVE: CASE EVENT DATE: 201809
